FAERS Safety Report 8120963-0 (Version None)
Quarter: 2011Q4

REPORT INFORMATION
  Report Type: 
  Country: None (occurrence: None)
  Receive Date: 20111227
  Receipt Date: 20110830
  Transmission Date: 20120403
  Serious: No
  Sender: FDA-Public Use
  Company Number: PHHY2011US36463

PATIENT
  Age: 47 Year
  Sex: Female

DRUGS (6)
  1. GILENYA [Suspect]
     Indication: MULTIPLE SCLEROSIS
     Dosage: 0.5 MG, QD, ORAL
     Route: 048
     Dates: start: 20110417
  2. TIZANIDINE HCL [Concomitant]
  3. ZANAFLEX [Concomitant]
  4. PROMETHAZINE [Concomitant]
  5. PROVIGIL [Concomitant]
  6. DOXYCYCLINE [Concomitant]

REACTIONS (4)
  - FATIGUE [None]
  - GAIT DISTURBANCE [None]
  - POOR PERIPHERAL CIRCULATION [None]
  - BACK PAIN [None]
